FAERS Safety Report 12624158 (Version 2)
Quarter: 2016Q3

REPORT INFORMATION
  Report Type: Spontaneous
  Country: GB (occurrence: GB)
  Receive Date: 20160805
  Receipt Date: 20160809
  Transmission Date: 20161109
  Serious: Yes (Other)
  Sender: FDA-Public Use
  Company Number: GB-ROCHE-1807970

PATIENT
  Sex: Male

DRUGS (1)
  1. DIAZEPAM. [Suspect]
     Active Substance: DIAZEPAM
     Indication: PRODUCT USED FOR UNKNOWN INDICATION
     Route: 065

REACTIONS (13)
  - Paranoia [Unknown]
  - Emotional distress [Unknown]
  - Cardiac disorder [Unknown]
  - Depression [Unknown]
  - Decreased appetite [Unknown]
  - Seizure [Unknown]
  - Hallucination [Unknown]
  - Disturbance in attention [Unknown]
  - General physical health deterioration [Unknown]
  - Insomnia [Unknown]
  - Nightmare [Unknown]
  - Mental impairment [Unknown]
  - Cognitive disorder [Unknown]
